FAERS Safety Report 11778541 (Version 1)
Quarter: 2015Q4

REPORT INFORMATION
  Report Type: Spontaneous
  Country: US (occurrence: US)
  Receive Date: 20151125
  Receipt Date: 20151125
  Transmission Date: 20160304
  Serious: No
  Sender: FDA-Public Use
  Company Number: US-TEVA-533911USA

PATIENT
  Sex: Male

DRUGS (1)
  1. BUDESONIDE. [Suspect]
     Active Substance: BUDESONIDE
     Indication: ASTHMA
     Dates: start: 201411, end: 20150109

REACTIONS (2)
  - Oral candidiasis [Not Recovered/Not Resolved]
  - Rash generalised [Not Recovered/Not Resolved]
